FAERS Safety Report 25569423 (Version 1)
Quarter: 2025Q3

REPORT INFORMATION
  Report Type: Spontaneous
  Country: US (occurrence: US)
  Receive Date: 20250716
  Receipt Date: 20250716
  Transmission Date: 20251021
  Serious: No
  Sender: MERCK SHARP & DOHME LLC
  Company Number: US-009507513-2305204

PATIENT
  Age: 67 Year
  Sex: Female

DRUGS (2)
  1. JANUVIA [Suspect]
     Active Substance: SITAGLIPTIN PHOSPHATE
     Indication: Diabetes mellitus management
     Dosage: STRENGTH AND DOSE REPORTED AS 100 MG, 1X DAILY (QD)
     Route: 048
     Dates: start: 20250623
  2. METFORMIN [Suspect]
     Active Substance: METFORMIN HYDROCHLORIDE
     Route: 065

REACTIONS (4)
  - Abdominal distension [Unknown]
  - Nausea [Unknown]
  - Dyspepsia [Unknown]
  - Gastrointestinal disorder [Unknown]
